FAERS Safety Report 18855743 (Version 1)
Quarter: 2021Q1

REPORT INFORMATION
  Report Type: Spontaneous
  Country: US (occurrence: US)
  Receive Date: 20210205
  Receipt Date: 20210205
  Transmission Date: 20210420
  Serious: No
  Sender: FDA-Public Use
  Company Number: US-NEURELIS, INC.-2020NEU000209

PATIENT

DRUGS (2)
  1. VALTOCO [Suspect]
     Active Substance: DIAZEPAM
     Indication: SEIZURE
     Dosage: 10 MG, AS NEEDED, FOR 2 OR MORE SEIZURES IN 24 HOURS
     Route: 045
     Dates: start: 20201110
  2. VALTOCO [Suspect]
     Active Substance: DIAZEPAM
     Dosage: UNK

REACTIONS (2)
  - Device difficult to use [Unknown]
  - Dysgeusia [Unknown]

NARRATIVE: CASE EVENT DATE: 20201110
